FAERS Safety Report 9294436 (Version 2)
Quarter: 2013Q2

REPORT INFORMATION
  Report Type: Spontaneous
  Country: CA (occurrence: CA)
  Receive Date: 20130517
  Receipt Date: 20130522
  Transmission Date: 20140414
  Serious: Yes (Death)
  Sender: FDA-Public Use
  Company Number: CA-ROCHE-1225482

PATIENT
  Sex: 0
  Weight: 47 kg

DRUGS (1)
  1. TNKASE [Suspect]
     Indication: PRODUCT USED FOR UNKNOWN INDICATION
     Route: 042

REACTIONS (5)
  - Chest pain [Fatal]
  - Electrocardiogram abnormal [Fatal]
  - Hypertension [Fatal]
  - Platelet count decreased [Fatal]
  - Troponin increased [Fatal]
